FAERS Safety Report 15434389 (Version 1)
Quarter: 2018Q3

REPORT INFORMATION
  Report Type: Spontaneous
  Country: US (occurrence: US)
  Receive Date: 20180924
  Receipt Date: 20180924
  Transmission Date: 20181010
  Serious: No
  Sender: FDA-Public Use
  Company Number: None

PATIENT
  Age: 52 Year
  Sex: Male

DRUGS (1)
  1. ENBREL [Suspect]
     Active Substance: ETANERCEPT
     Route: 058
     Dates: start: 20180228

REACTIONS (3)
  - Wrong technique in product usage process [None]
  - Arthralgia [None]
  - Incorrect drug administration rate [None]

NARRATIVE: CASE EVENT DATE: 20180919
